FAERS Safety Report 6427589-5 (Version None)
Quarter: 2009Q4

REPORT INFORMATION
  Report Type: 
  Country: None (occurrence: None)
  Receive Date: 20091104
  Receipt Date: 20091023
  Transmission Date: 20100525
  Serious: Yes (Hospitalization, Other)
  Sender: FDA-Public Use
  Company Number: US-PFIZER INC-2009288948

PATIENT
  Sex: Male
  Weight: 172.34 kg

DRUGS (16)
  1. NEURONTIN [Suspect]
     Indication: NEUROPATHY PERIPHERAL
     Dosage: 600 MG, UNK
     Dates: start: 20000101, end: 20090101
  2. LYRICA [Suspect]
     Indication: NEUROPATHY PERIPHERAL
     Dosage: 200 MG, 3X/DAY
     Dates: start: 20090101
  3. FISH OIL [Concomitant]
     Dosage: UNK
  4. SENNA [Concomitant]
     Dosage: UNK
  5. VITAMIN D [Concomitant]
     Dosage: UNK
  6. ASPIRIN [Concomitant]
     Dosage: UNK
  7. ACTOS [Concomitant]
     Dosage: UNK
  8. METOPROLOL [Concomitant]
     Dosage: UNK
  9. LISINOPRIL [Concomitant]
     Dosage: UNK
  10. ZETIA [Concomitant]
     Dosage: UNK
  11. DIOVAN [Concomitant]
     Dosage: UNK
  12. CYMBALTA [Concomitant]
     Dosage: UNK
  13. OMEPRAZOLE [Concomitant]
     Dosage: UNK
  14. LIPITOR [Concomitant]
     Dosage: UNK
  15. ATIVAN [Concomitant]
     Dosage: UNK
  16. MULTI-VITAMINS [Concomitant]
     Dosage: UNK

REACTIONS (9)
  - ANKLE FRACTURE [None]
  - DRUG INEFFECTIVE [None]
  - FALL [None]
  - FATIGUE [None]
  - INCONTINENCE [None]
  - LEG AMPUTATION [None]
  - PAIN [None]
  - PHANTOM PAIN [None]
  - SKIN ULCER [None]
